FAERS Safety Report 5680697-9 (Version None)
Quarter: 2008Q1

REPORT INFORMATION
  Report Type: 
  Country: None (occurrence: None)
  Receive Date: 20080326
  Receipt Date: 20080206
  Transmission Date: 20080703
  Serious: No
  Sender: FDA-Public Use
  Company Number: US-BAUSCH-2008BL000528

PATIENT
  Age: 66 Year
  Sex: Female

DRUGS (4)
  1. ALAWAY [Suspect]
     Indication: EYE ALLERGY
     Route: 047
     Dates: start: 20080201, end: 20080201
  2. ADVANCED EYE RELIEF/DRY EYE/REJUVENATION PF LUBRICANT EYE DROPS [Concomitant]
     Indication: KERATOCONJUNCTIVITIS SICCA
     Route: 047
  3. DURATUSS GP [Concomitant]
     Indication: MULTIPLE ALLERGIES
  4. CLARITIN /USA/ [Concomitant]
     Indication: MULTIPLE ALLERGIES

REACTIONS (2)
  - KERATOCONJUNCTIVITIS SICCA [None]
  - PHARMACEUTICAL PRODUCT COMPLAINT [None]
